FAERS Safety Report 7237592-3 (Version None)
Quarter: 2011Q1

REPORT INFORMATION
  Report Type: 
  Country: None (occurrence: None)
  Receive Date: 20110118
  Receipt Date: 20110106
  Transmission Date: 20110831
  Serious: Yes (Other)
  Sender: FDA-Public Use
  Company Number: MC201100004

PATIENT
  Sex: Male

DRUGS (3)
  1. ANGIOMAX [Suspect]
     Indication: PERCUTANEOUS CORONARY INTERVENTION
     Dosage: INTRAVENOUS
     Route: 042
     Dates: start: 20101223, end: 20101223
  2. ASPIRIN [Concomitant]
  3. PLAVIX [Concomitant]

REACTIONS (5)
  - CARDIOGENIC SHOCK [None]
  - THROMBOSIS IN DEVICE [None]
  - CHEST PAIN [None]
  - EXTRASYSTOLES [None]
  - MYOCARDIAL ISCHAEMIA [None]
